FAERS Safety Report 9793059 (Version 1)
Quarter: 2013Q4

REPORT INFORMATION
  Report Type: Spontaneous
  Country: US (occurrence: None)
  Receive Date: 20131231
  Receipt Date: 20131231
  Transmission Date: 20140711
  Serious: Yes (Disabling)
  Sender: FDA-Public Use
  Company Number: None

PATIENT
  Age: 49 Year
  Sex: Female
  Weight: 70.76 kg

DRUGS (1)
  1. HYDROCORT [Suspect]
     Indication: ADDISON^S DISEASE
     Dosage: 5-7 PILLS IN DIVIDED DOSES  FOURTIMES DAILY
     Route: 048
     Dates: start: 20120101, end: 20131229

REACTIONS (5)
  - Stress [None]
  - Product substitution issue [None]
  - Product substitution issue [None]
  - Addison^s disease [None]
  - Condition aggravated [None]
